FAERS Safety Report 11690033 (Version 1)
Quarter: 2015Q4

REPORT INFORMATION
  Report Type: Spontaneous
  Country: CA (occurrence: None)
  Receive Date: 20151030
  Receipt Date: 20151030
  Transmission Date: 20160304
  Serious: Yes (Hospitalization)
  Sender: FDA-Public Use
  Company Number: None

PATIENT
  Age: 63 Year
  Sex: Male
  Weight: 75.1 kg

DRUGS (3)
  1. ELOXATIN [Suspect]
     Active Substance: OXALIPLATIN
     Dates: end: 20150814
  2. FLUOROURACIL. [Suspect]
     Active Substance: FLUOROURACIL
     Dates: end: 20150816
  3. LEUCOVORIN CALCIUM. [Suspect]
     Active Substance: LEUCOVORIN CALCIUM
     Dates: end: 20150814

REACTIONS (5)
  - Anastomotic leak [None]
  - Escherichia infection [None]
  - Purulence [None]
  - Enterococcal infection [None]
  - Alpha haemolytic streptococcal infection [None]

NARRATIVE: CASE EVENT DATE: 20150915
